FAERS Safety Report 21097735 (Version 1)
Quarter: 2022Q3

REPORT INFORMATION
  Report Type: Report from Study
  Country: US (occurrence: US)
  Receive Date: 20220719
  Receipt Date: 20220719
  Transmission Date: 20221027
  Serious: Yes (Other)
  Sender: FDA-Public Use
  Company Number: US-ABBVIE-22K-163-4470781-00

PATIENT
  Sex: Female

DRUGS (2)
  1. HUMIRA [Suspect]
     Active Substance: ADALIMUMAB
     Indication: Hidradenitis
     Dosage: CITRATE FREE
     Route: 058
     Dates: start: 20210216, end: 20220714
  2. HUMIRA [Suspect]
     Active Substance: ADALIMUMAB
     Indication: Uveitis

REACTIONS (6)
  - Tumour thrombosis [Unknown]
  - Lymphadenopathy [Not Recovered/Not Resolved]
  - Inguinal mass [Not Recovered/Not Resolved]
  - Necrosis [Unknown]
  - Visual impairment [Unknown]
  - Thrombosis [Not Recovered/Not Resolved]
